FAERS Safety Report 5094002-2 (Version None)
Quarter: 2006Q3

REPORT INFORMATION
  Report Type: 
  Country: None (occurrence: None)
  Receive Date: 20060728
  Receipt Date: 20060621
  Transmission Date: 20061208
  Serious: No
  Sender: FDA-Public Use
  Company Number: 254329

PATIENT
  Age: 63 Year
  Sex: Female
  Weight: 130.2 kg

DRUGS (6)
  1. LEVEMIR [Suspect]
     Indication: INSULIN-REQUIRING TYPE II DIABETES MELLITUS
     Dosage: 92 IU SPREAD OUT DURING DAY, SUBCUTANEOUS
     Route: 058
     Dates: start: 20060516, end: 20060615
  2. NOVOLOG [Concomitant]
  3. METFORMIN HCL [Concomitant]
  4. HYDROCHLOROTHIAZIDE [Concomitant]
  5. HYZAAR [Concomitant]
  6. ATENOLOL [Concomitant]

REACTIONS (6)
  - ABDOMINAL PAIN UPPER [None]
  - BLOOD GLUCOSE INCREASED [None]
  - CHILLS [None]
  - DIZZINESS [None]
  - MENSTRUATION IRREGULAR [None]
  - WEIGHT INCREASED [None]
